FAERS Safety Report 6485416-4 (Version None)
Quarter: 2009Q4

REPORT INFORMATION
  Report Type: 
  Country: None (occurrence: None)
  Receive Date: 20091209
  Receipt Date: 20090625
  Transmission Date: 20100525
  Serious: No
  Sender: FDA-Public Use
  Company Number: US-AMGEN-KDL353231

PATIENT
  Sex: Male

DRUGS (7)
  1. ENBREL [Suspect]
     Indication: PSORIASIS
     Route: 058
     Dates: start: 20090301
  2. OMEPRAZOLE [Concomitant]
  3. ACTONEL [Concomitant]
  4. AVODART [Concomitant]
  5. LISINOPRIL [Concomitant]
  6. XALATAN [Concomitant]
  7. DORZOLAMIDE [Concomitant]

REACTIONS (1)
  - DIARRHOEA [None]
